FAERS Safety Report 8074052-4 (Version None)
Quarter: 2012Q1

REPORT INFORMATION
  Report Type: 
  Country: None (occurrence: None)
  Receive Date: 20120119
  Receipt Date: 20120112
  Transmission Date: 20120608
  Serious: Yes (Death)
  Sender: FDA-Public Use
  Company Number: WAES 1112USA03047

PATIENT
  Age: 78 Year
  Sex: Male

DRUGS (26)
  1. NORVASC [Concomitant]
  2. TEMSIROLIMUS [Suspect]
     Indication: RENAL CELL CARCINOMA
     Dosage: 15 MG/WKY
     Route: 042
     Dates: start: 20111014, end: 20111021
  3. ALDACTAZIDE [Concomitant]
  4. LASIX (FUROSMIDE) [Concomitant]
  5. MG OXIDE [Concomitant]
  6. PURSENNID (SENNA) [Concomitant]
  7. DECADRON [Suspect]
     Indication: CERVICAL CORD COMPRESSION
     Dosage: 4 MG/BID 2 MG/BID 1.5 MG/BID 1 MG/BID 1 MG/DAILY
     Route: 048
     Dates: start: 20111005, end: 20111020
  8. DECADRON [Suspect]
     Indication: CERVICAL CORD COMPRESSION
     Dosage: 4 MG/BID 2 MG/BID 1.5 MG/BID 1 MG/BID 1 MG/DAILY
     Route: 048
     Dates: start: 20110909, end: 20111004
  9. DECADRON [Suspect]
     Indication: CERVICAL CORD COMPRESSION
     Dosage: 4 MG/BID 2 MG/BID 1.5 MG/BID 1 MG/BID 1 MG/DAILY
     Route: 048
     Dates: start: 20110826, end: 20110901
  10. DECADRON [Suspect]
     Indication: CERVICAL CORD COMPRESSION
     Dosage: 4 MG/BID 2 MG/BID 1.5 MG/BID 1 MG/BID 1 MG/DAILY
     Route: 048
     Dates: start: 20110823, end: 20110825
  11. DECADRON [Suspect]
     Indication: CERVICAL CORD COMPRESSION
     Dosage: 4 MG/BID 2 MG/BID 1.5 MG/BID 1 MG/BID 1 MG/DAILY
     Route: 048
     Dates: start: 20110902, end: 20110908
  12. DECADRON [Suspect]
     Indication: CERVICAL CORD COMPRESSION
     Dosage: 19.8 MG/TID 18.5 MG/TID 13.2 MG/TID 9.9 MG/TID 9.9 MG/BID 9.9 MG/DAILY
     Route: 042
     Dates: start: 20110814, end: 20110816
  13. DECADRON [Suspect]
     Indication: CERVICAL CORD COMPRESSION
     Dosage: 19.8 MG/TID 18.5 MG/TID 13.2 MG/TID 9.9 MG/TID 9.9 MG/BID 9.9 MG/DAILY
     Route: 042
     Dates: start: 20110817, end: 20110819
  14. DECADRON [Suspect]
     Indication: CERVICAL CORD COMPRESSION
     Dosage: 19.8 MG/TID 18.5 MG/TID 13.2 MG/TID 9.9 MG/TID 9.9 MG/BID 9.9 MG/DAILY
     Route: 042
     Dates: start: 20110805, end: 20110807
  15. DECADRON [Suspect]
     Indication: CERVICAL CORD COMPRESSION
     Dosage: 19.8 MG/TID 18.5 MG/TID 13.2 MG/TID 9.9 MG/TID 9.9 MG/BID 9.9 MG/DAILY
     Route: 042
     Dates: start: 20110808, end: 20110810
  16. DECADRON [Suspect]
     Indication: CERVICAL CORD COMPRESSION
     Dosage: 19.8 MG/TID 18.5 MG/TID 13.2 MG/TID 9.9 MG/TID 9.9 MG/BID 9.9 MG/DAILY
     Route: 042
     Dates: start: 20110820, end: 20110822
  17. DECADRON [Suspect]
     Indication: CERVICAL CORD COMPRESSION
     Dosage: 19.8 MG/TID 18.5 MG/TID 13.2 MG/TID 9.9 MG/TID 9.9 MG/BID 9.9 MG/DAILY
     Route: 042
     Dates: start: 20110811, end: 20110813
  18. ZOMETA [Concomitant]
  19. LOXONIN [Concomitant]
  20. OXYCONTIN [Concomitant]
  21. RESCALMIN [Concomitant]
  22. FENTORA [Concomitant]
  23. LACTEC G [Concomitant]
  24. RISPERDAL [Concomitant]
  25. LASIX [Concomitant]
  26. MANNIGEN [Concomitant]

REACTIONS (6)
  - RESTLESSNESS [None]
  - TACHYCARDIA [None]
  - INFECTION IN AN IMMUNOCOMPROMISED HOST [None]
  - TREATMENT NONCOMPLIANCE [None]
  - PNEUMOCYSTIS JIROVECI PNEUMONIA [None]
  - BLOOD LACTATE DEHYDROGENASE INCREASED [None]
